FAERS Safety Report 14536471 (Version 1)
Quarter: 2018Q1

REPORT INFORMATION
  Report Type: Spontaneous
  Country: CH (occurrence: CH)
  Receive Date: 20180215
  Receipt Date: 20180215
  Transmission Date: 20180509
  Serious: Yes (Hospitalization)
  Sender: FDA-Public Use
  Company Number: CH-SA-2018SA034657

PATIENT
  Age: 44 Year
  Sex: Male

DRUGS (11)
  1. CIPROXIN [Concomitant]
     Active Substance: CIPROFLOXACIN
     Route: 048
  2. TAMSULOSIN [Concomitant]
     Active Substance: TAMSULOSIN
     Route: 048
  3. QUETIAPINE. [Concomitant]
     Active Substance: QUETIAPINE
     Route: 048
  4. BIOFLORIN [Concomitant]
     Route: 048
  5. DALTEPARIN [Suspect]
     Active Substance: DALTEPARIN
     Route: 058
     Dates: start: 201712, end: 201712
  6. LIORESAL [Concomitant]
     Active Substance: BACLOFEN
     Route: 048
  7. ENOXAPARIN SODIUM. [Suspect]
     Active Substance: ENOXAPARIN SODIUM
     Indication: AORTIC VALVE REPLACEMENT
     Route: 058
     Dates: start: 201711, end: 201712
  8. IPRAMOL [Concomitant]
     Active Substance: ALBUTEROL SULFATE\IPRATROPIUM BROMIDE
     Route: 055
  9. PANTOZOL [Concomitant]
     Active Substance: PANTOPRAZOLE SODIUM
     Route: 048
  10. NICOTINE. [Concomitant]
     Active Substance: NICOTINE
     Dosage: MATRIX PATCH, EVERY 24 HOURS
     Route: 065
  11. DULCOLAX NOS [Concomitant]
     Active Substance: BISACODYL OR DOCUSATE SODIUM
     Route: 065

REACTIONS (1)
  - Bladder tamponade [Recovered/Resolved]

NARRATIVE: CASE EVENT DATE: 20171117
